FAERS Safety Report 8990775 (Version 1)
Quarter: 2012Q4

REPORT INFORMATION
  Report Type: Spontaneous
  Country: US (occurrence: None)
  Receive Date: 20121226
  Receipt Date: 20121226
  Transmission Date: 20130627
  Serious: Yes (Hospitalization)
  Sender: FDA-Public Use
  Company Number: None

PATIENT
  Age: 54 Year
  Sex: Female
  Weight: 63.5 kg

DRUGS (10)
  1. COPAXONE 20MG TEVA NEUROSCIENCE [Suspect]
     Indication: RELAPSING-REMITTING MULTIPLE SCLEROSIS
     Dosage: 20mg daily subqutaneous
     Route: 058
     Dates: start: 20091217
  2. ADVAR [Concomitant]
  3. ALBUTEROL [Concomitant]
  4. ALLEGRA [Concomitant]
  5. ATROVASTATIN [Concomitant]
  6. BACLOFEN [Concomitant]
  7. HYDROXYZINE [Concomitant]
  8. IMITREX [Concomitant]
  9. LEXAPRO [Concomitant]
  10. SYNTHROID [Concomitant]

REACTIONS (2)
  - Chest pain [None]
  - Chest discomfort [None]
